FAERS Safety Report 9253617 (Version 2)
Quarter: 2013Q2

REPORT INFORMATION
  Report Type: Spontaneous
  Country: US (occurrence: US)
  Receive Date: 20130425
  Receipt Date: 20130611
  Transmission Date: 20140414
  Serious: No
  Sender: FDA-Public Use
  Company Number: US-BIOGENIDEC-2013BI037426

PATIENT
  Age: 42 Year
  Sex: Female

DRUGS (1)
  1. TYSABRI [Suspect]
     Indication: MULTIPLE SCLEROSIS
     Route: 042
     Dates: start: 20120125

REACTIONS (10)
  - Mental disorder [Not Recovered/Not Resolved]
  - Induration [Not Recovered/Not Resolved]
  - Lung disorder [Not Recovered/Not Resolved]
  - Cardiac arrest [Not Recovered/Not Resolved]
  - Schizophrenia [Not Recovered/Not Resolved]
  - Bipolar disorder [Not Recovered/Not Resolved]
  - Abnormal behaviour [Recovered/Resolved]
  - Affective disorder [Recovered/Resolved]
  - Nervous system disorder [Not Recovered/Not Resolved]
  - Dyspnoea [Not Recovered/Not Resolved]
